FAERS Safety Report 20513539 (Version 1)
Quarter: 2022Q1

REPORT INFORMATION
  Report Type: Spontaneous
  Country: US (occurrence: US)
  Receive Date: 20220224
  Receipt Date: 20220224
  Transmission Date: 20220423
  Serious: No
  Sender: FDA-Public Use
  Company Number: US-AMNEAL PHARMACEUTICALS-2021-AMRX-04602

PATIENT
  Age: 64 Year
  Sex: Male

DRUGS (5)
  1. RYTARY [Suspect]
     Active Substance: CARBIDOPA\LEVODOPA
     Indication: Parkinson^s disease
     Dosage: 36.25/145MG, 3 CAPSULES, 5 /DAY (6:30AM, 10:30AM, 2PM, 5:30PM AND 9:30PM, TAKE 3 CAPS IN THE MIDDLE
     Route: 048
     Dates: start: 20211102, end: 202111
  2. RYTARY [Suspect]
     Active Substance: CARBIDOPA\LEVODOPA
     Dosage: 36.25/145MG, 5 CAPSULES, 5 /DAY (6:30AM, 10:30AM, 2:30PM, 6:30PM, 10:30, AND THE MIDDLE OF THE NIGHT
     Route: 048
  3. RYTARY [Suspect]
     Active Substance: CARBIDOPA\LEVODOPA
     Dosage: 36.25/145MG, 5 CAPSULES, 5 /DAY AND IN NIGHT IF NEEDED
     Route: 065
     Dates: start: 202111, end: 202111
  4. RYTARY [Suspect]
     Active Substance: CARBIDOPA\LEVODOPA
     Dosage: 36.25/145MG, 4 CAPSULES, 5 /DAY AND 5 CAPSULES AT NIGHT IF NEEDED
     Route: 065
     Dates: start: 202111, end: 202111
  5. RYTARY [Suspect]
     Active Substance: CARBIDOPA\LEVODOPA
     Dosage: 23.75/95MG, 1 CAPSULES, 5 /DAY AT 6:30AM, 10:30AM, 2PM, 5:30PM, 9:30PM, AND IN THE MIDDLE OF THE NIG
     Route: 048
     Dates: start: 20211110

REACTIONS (4)
  - Therapeutic response shortened [Unknown]
  - Tremor [Unknown]
  - Dyskinesia [Unknown]
  - Prescribed overdose [Unknown]

NARRATIVE: CASE EVENT DATE: 20211101
